FAERS Safety Report 17864259 (Version 3)
Quarter: 2020Q4

REPORT INFORMATION
  Report Type: Spontaneous
  Country: US (occurrence: US)
  Receive Date: 20200605
  Receipt Date: 20201126
  Transmission Date: 20210113
  Serious: No
  Sender: FDA-Public Use
  Company Number: US-GLAXOSMITHKLINE-US2020AMR093394

PATIENT
  Sex: Female

DRUGS (5)
  1. OMEPRAZOLE. [Concomitant]
     Active Substance: OMEPRAZOLE
     Indication: PRODUCT USED FOR UNKNOWN INDICATION
     Dosage: UNK
  2. TOPIRAMATE. [Concomitant]
     Active Substance: TOPIRAMATE
     Indication: PRODUCT USED FOR UNKNOWN INDICATION
     Dosage: UNK
  3. ZEJULA [Suspect]
     Active Substance: NIRAPARIB
     Indication: OVARIAN CANCER
     Dosage: 100 MG, QD
     Route: 065
  4. ZEJULA [Suspect]
     Active Substance: NIRAPARIB
     Dosage: 100 MG, QD
     Route: 065
  5. ZEJULA [Suspect]
     Active Substance: NIRAPARIB
     Dosage: 100 MG, QD
     Route: 065

REACTIONS (9)
  - Rash [Not Recovered/Not Resolved]
  - Nasopharyngitis [Unknown]
  - Nausea [Unknown]
  - Off label use [Unknown]
  - Product dose omission issue [Unknown]
  - Treatment noncompliance [Unknown]
  - Insomnia [Recovering/Resolving]
  - Illness [Unknown]
  - Rash pruritic [Not Recovered/Not Resolved]
